FAERS Safety Report 11651808 (Version 1)
Quarter: 2015Q4

REPORT INFORMATION
  Report Type: Spontaneous
  Country: US (occurrence: US)
  Receive Date: 20151022
  Receipt Date: 20151022
  Transmission Date: 20160304
  Serious: No
  Sender: FDA-Public Use
  Company Number: US-JNJFOC-20150925916

PATIENT
  Age: 38 Year
  Sex: Female

DRUGS (1)
  1. SIMPONI ARIA [Suspect]
     Active Substance: GOLIMUMAB
     Indication: RHEUMATOID ARTHRITIS
     Route: 042

REACTIONS (6)
  - Depression [Unknown]
  - Asthenia [Unknown]
  - Influenza like illness [Unknown]
  - Anxiety [Unknown]
  - Malaise [Unknown]
  - Arthralgia [Unknown]
